FAERS Safety Report 23720928 (Version 1)
Quarter: 2024Q2

REPORT INFORMATION
  Report Type: Spontaneous
  Country: FR (occurrence: None)
  Receive Date: 20240409
  Receipt Date: 20240409
  Transmission Date: 20240716
  Serious: Yes (Life-Threatening)
  Sender: FDA-Public Use
  Company Number: None

PATIENT
  Age: 70 Year
  Sex: Female
  Weight: 73 kg

DRUGS (5)
  1. AVASTIN [Suspect]
     Active Substance: BEVACIZUMAB
     Indication: Ovarian cancer
     Route: 065
     Dates: start: 20220415, end: 20230803
  2. IRBESARTAN [Concomitant]
     Active Substance: IRBESARTAN
  3. AZITHROMYCIN [Concomitant]
     Active Substance: AZITHROMYCIN
  4. PANTOPRAZOLE [Concomitant]
     Active Substance: PANTOPRAZOLE
  5. OLAPARIB [Concomitant]
     Active Substance: OLAPARIB

REACTIONS (2)
  - Carotid artery aneurysm [Recovered/Resolved with Sequelae]
  - Ruptured cerebral aneurysm [Recovered/Resolved with Sequelae]

NARRATIVE: CASE EVENT DATE: 20230818
